FAERS Safety Report 25425946 (Version 1)
Quarter: 2025Q2

REPORT INFORMATION
  Report Type: Spontaneous
  Country: IT (occurrence: IT)
  Receive Date: 20250612
  Receipt Date: 20250612
  Transmission Date: 20250717
  Serious: Yes (Death, Other)
  Sender: AMGEN
  Company Number: IT-AMGEN-ITASP2025111296

PATIENT

DRUGS (2)
  1. EVOLOCUMAB [Suspect]
     Active Substance: EVOLOCUMAB
     Indication: Dyslipidaemia
     Dosage: 140 MILLIGRAM, Q2WK
     Route: 065
  2. EVOLOCUMAB [Suspect]
     Active Substance: EVOLOCUMAB
     Indication: Acute coronary syndrome

REACTIONS (3)
  - Death [Fatal]
  - Myocardial infarction [Unknown]
  - Vascular stent thrombosis [Unknown]
